FAERS Safety Report 16330778 (Version 1)
Quarter: 2019Q2

REPORT INFORMATION
  Report Type: Spontaneous
  Country: US (occurrence: US)
  Receive Date: 20190520
  Receipt Date: 20190520
  Transmission Date: 20190711
  Serious: No
  Sender: FDA-Public Use
  Company Number: US-BAUSCH-BL-2018-011440

PATIENT
  Age: 76 Year
  Sex: Male
  Weight: 77.63 kg

DRUGS (3)
  1. DOXAZOSIN [Concomitant]
     Active Substance: DOXAZOSIN\DOXAZOSIN MESYLATE
     Indication: PRODUCT USED FOR UNKNOWN INDICATION
  2. IPRATROPIUM BROMIDE NASAL SOLUTION 0.03% [Suspect]
     Active Substance: IPRATROPIUM BROMIDE
     Indication: RHINORRHOEA
     Dosage: TWO SPRAYS
     Route: 045
     Dates: start: 20180414, end: 20180414
  3. IRBESARTAN. [Concomitant]
     Active Substance: IRBESARTAN
     Indication: PRODUCT USED FOR UNKNOWN INDICATION

REACTIONS (17)
  - Feeling abnormal [Recovering/Resolving]
  - Fatigue [Recovering/Resolving]
  - Disturbance in attention [Recovering/Resolving]
  - Decreased appetite [Recovering/Resolving]
  - Hyperhidrosis [Recovering/Resolving]
  - Bedridden [Recovering/Resolving]
  - Dizziness [Not Recovered/Not Resolved]
  - Weight decreased [Recovering/Resolving]
  - Abdominal pain upper [Recovering/Resolving]
  - Paraesthesia [Recovering/Resolving]
  - Feeling cold [Recovering/Resolving]
  - Dry mouth [Recovering/Resolving]
  - Nausea [Not Recovered/Not Resolved]
  - Chest pain [Recovering/Resolving]
  - Muscular weakness [Recovering/Resolving]
  - Confusional state [Recovering/Resolving]
  - Dysstasia [Recovering/Resolving]

NARRATIVE: CASE EVENT DATE: 20180414
